FAERS Safety Report 10418947 (Version 2)
Quarter: 2014Q3

REPORT INFORMATION
  Report Type: Spontaneous
  Country: IT (occurrence: IT)
  Receive Date: 20140829
  Receipt Date: 20140910
  Transmission Date: 20150326
  Serious: Yes (Hospitalization)
  Sender: FDA-Public Use
  Company Number: PHHY2014IT105560

PATIENT
  Sex: Male

DRUGS (4)
  1. VALPROATE SODIUM. [Suspect]
     Active Substance: VALPROATE SODIUM
     Dosage: 4000 MG, ONCE/SINGLE
     Route: 048
     Dates: start: 20140711, end: 20140711
  2. LORAZEPAM. [Suspect]
     Active Substance: LORAZEPAM
     Dosage: 17.5 MG, ONCE/SINGLE
     Route: 048
     Dates: start: 20140711, end: 20140711
  3. TALOFEN [Suspect]
     Active Substance: PROMAZINE HYDROCHLORIDE
     Dosage: 30 MG, ONCE/SINGLE
     Route: 048
     Dates: start: 20140711, end: 20140711
  4. PAROXETINE [Suspect]
     Active Substance: PAROXETINE\PAROXETINE HYDROCHLORIDE
     Dosage: 160 MG, ONCE/SINGLE
     Route: 048
     Dates: start: 20140711, end: 20140711

REACTIONS (3)
  - Sedation [Recovering/Resolving]
  - Drug abuse [Recovering/Resolving]
  - Somnolence [Recovering/Resolving]

NARRATIVE: CASE EVENT DATE: 20140711
